FAERS Safety Report 6919815 (Version 12)
Quarter: 2013Q1

REPORT INFORMATION
  Report Type: Spontaneous
  Country: US (occurrence: US)
  Receive Date: 20090225
  Receipt Date: 20130329
  Transmission Date: 20140127
  Serious: Yes (Death, Other)
  Sender: FDA-Public Use
  Company Number: PHEH2009US02004

PATIENT
  Age: 44 Year
  Sex: Female

DRUGS (14)
  1. ZOMETA [Suspect]
     Indication: NEOPLASM MALIGNANT
     Dosage: 4 MG, QMO
  2. BISPHOSPHONATES [Concomitant]
     Dates: start: 20060214
  3. FASLODEX [Concomitant]
  4. ATIVAN [Concomitant]
  5. OXYCODONE [Concomitant]
  6. EXEMESTANE [Concomitant]
  7. CALCIUM [Concomitant]
  8. ACTONEL [Concomitant]
  9. TAMOXIFEN [Concomitant]
  10. ADRIAMYCIN [Concomitant]
  11. AVASTIN [Concomitant]
  12. TAXOL [Concomitant]
  13. ZANTAC [Concomitant]
  14. IBUPROFEN [Concomitant]
     Dosage: 600 MG, TID

REACTIONS (40)
  - Death [Fatal]
  - Osteonecrosis of jaw [Unknown]
  - Pain in jaw [Unknown]
  - Discomfort [Unknown]
  - Deformity [Unknown]
  - Dysphagia [Unknown]
  - Anxiety [Unknown]
  - Endometrial hypertrophy [Unknown]
  - Metastases to bone [Unknown]
  - Metastases to liver [Unknown]
  - Hepatic lesion [Unknown]
  - Intervertebral disc degeneration [Unknown]
  - Lung hyperinflation [Unknown]
  - Lymphadenopathy [Unknown]
  - Pleural effusion [Unknown]
  - Deep vein thrombosis [Unknown]
  - Bone lesion [Unknown]
  - Brain mass [Unknown]
  - Metastases to lung [Unknown]
  - Lymphadenopathy mediastinal [Unknown]
  - Atelectasis [Unknown]
  - Gingival swelling [Unknown]
  - Abscess oral [Unknown]
  - Fistula discharge [Recovering/Resolving]
  - Immunodeficiency [Unknown]
  - Impaired healing [Unknown]
  - Intervertebral disc space narrowing [Unknown]
  - Intervertebral disc protrusion [Unknown]
  - Spondylolisthesis [Unknown]
  - Osteopenia [Unknown]
  - Endometriosis [Unknown]
  - Gastrooesophageal reflux disease [Unknown]
  - Diarrhoea [Unknown]
  - Malaise [Unknown]
  - Nausea [Unknown]
  - Back pain [Unknown]
  - Flank pain [Unknown]
  - Arthralgia [Unknown]
  - Joint swelling [Unknown]
  - Radiculopathy [Unknown]
